FAERS Safety Report 6786643-9 (Version None)
Quarter: 2010Q2

REPORT INFORMATION
  Report Type: 
  Country: None (occurrence: None)
  Receive Date: 20100623
  Receipt Date: 20100621
  Transmission Date: 20101027
  Serious: Yes (Life-Threatening, Hospitalization)
  Sender: FDA-Public Use
  Company Number: GB-BRISTOL-MYERS SQUIBB COMPANY-15159056

PATIENT
  Age: 28 Year
  Sex: Male
  Weight: 76 kg

DRUGS (8)
  1. CISPLATIN [Suspect]
     Indication: CHEMOTHERAPY
     Dosage: RECEIVED FROM 29DEC09-30DEC09. AGAIN FROM JAN-2010
     Route: 042
     Dates: start: 20091229
  2. ETOPOSIDE [Suspect]
     Indication: CHEMOTHERAPY
     Dosage: RECEIVED FROM 29DEC09-31DEC09. AGAIN FROM JAN-2010
     Route: 042
     Dates: start: 20091229
  3. BLEOMYCIN SULFATE [Suspect]
     Indication: CHEMOTHERAPY
     Route: 042
     Dates: start: 20091230, end: 20091230
  4. NEULASTA [Suspect]
     Indication: PROPHYLAXIS
     Route: 058
     Dates: start: 20100101, end: 20100101
  5. APREPITANT [Concomitant]
     Dates: start: 20091229, end: 20091231
  6. DEXAMETHASONE ACETATE [Concomitant]
     Dates: start: 20091229, end: 20100102
  7. METOCLOPRAMIDE [Concomitant]
     Route: 048
     Dates: start: 20091229
  8. ONDANSETRON [Concomitant]
     Dates: start: 20091229, end: 20100102

REACTIONS (2)
  - FACIAL PAIN [None]
  - FEBRILE NEUTROPENIA [None]
